FAERS Safety Report 11625376 (Version 2)
Quarter: 2015Q4

REPORT INFORMATION
  Report Type: Spontaneous
  Country: US (occurrence: US)
  Receive Date: 20151013
  Receipt Date: 20151030
  Transmission Date: 20160304
  Serious: Yes (Hospitalization, Other)
  Sender: FDA-Public Use
  Company Number: US-PFIZER INC-2015338730

PATIENT
  Age: 63 Year
  Sex: Female
  Weight: 91 kg

DRUGS (2)
  1. COUMADINE [Concomitant]
     Active Substance: WARFARIN SODIUM
  2. AROMASIN [Suspect]
     Active Substance: EXEMESTANE
     Indication: NEOPLASM MALIGNANT
     Dosage: 25 MG, 1X/DAY
     Route: 048

REACTIONS (4)
  - Pain in extremity [Unknown]
  - Haemoglobin decreased [Unknown]
  - Confusional state [Not Recovered/Not Resolved]
  - Urinary tract infection [Unknown]

NARRATIVE: CASE EVENT DATE: 20151006
